FAERS Safety Report 8334109-7 (Version None)
Quarter: 2012Q2

REPORT INFORMATION
  Report Type: 
  Country: None (occurrence: None)
  Receive Date: 20120503
  Receipt Date: 20110318
  Transmission Date: 20120825
  Serious: No
  Sender: FDA-Public Use
  Company Number: US-TEVA-2011000933

PATIENT
  Sex: Male
  Weight: 90.8 kg

DRUGS (6)
  1. NUVIGIL [Suspect]
     Indication: FATIGUE
     Dosage: 250 MILLIGRAM;
     Route: 048
     Dates: start: 20101201, end: 20110101
  2. ZOCOR [Concomitant]
  3. CHANTIX [Concomitant]
     Dates: start: 20101001
  4. PRILOSEC [Concomitant]
  5. METFORMIN HCL [Concomitant]
     Dates: start: 20100101
  6. LYRICA [Concomitant]
     Dates: start: 20090101

REACTIONS (1)
  - ANXIETY [None]
